FAERS Safety Report 4626304-5 (Version None)
Quarter: 2005Q1

REPORT INFORMATION
  Report Type: 
  Country: None (occurrence: None)
  Receive Date: 20050321
  Receipt Date: 20040213
  Transmission Date: 20050727
  Serious: Yes (Hospitalization)
  Sender: FDA-Public Use
  Company Number: 200410754BCC

PATIENT
  Age: 87 Year
  Sex: Female

DRUGS (8)
  1. ALEVE (CAPLET) [Suspect]
     Indication: NASOPHARYNGITIS
     Dosage: 220 MG, ONCE, ORAL
     Route: 048
     Dates: start: 20031201
  2. COZAAR [Concomitant]
  3. GLUCOPHAGE [Concomitant]
  4. VITAMIN E [Concomitant]
  5. VITAMIN B-12 [Concomitant]
  6. GLYBURIDE [Concomitant]
  7. IBUPROFEN [Concomitant]
  8. ASPIRIN [Concomitant]

REACTIONS (2)
  - BLOOD GLUCOSE INCREASED [None]
  - DIZZINESS [None]
